FAERS Safety Report 24553688 (Version 1)
Quarter: 2024Q4

REPORT INFORMATION
  Report Type: Report from Study
  Country: US (occurrence: US)
  Receive Date: 20241028
  Receipt Date: 20241028
  Transmission Date: 20250115
  Serious: No
  Sender: ROCHE
  Company Number: US-ROCHE-3468810

PATIENT
  Sex: Male
  Weight: 52.9 kg

DRUGS (3)
  1. NUTROPIN AQ [Suspect]
     Active Substance: SOMATROPIN
     Indication: Growth hormone deficiency
     Route: 058
     Dates: start: 20220201
  2. NUTROPIN AQ [Suspect]
     Active Substance: SOMATROPIN
     Dosage: 20 MG PEN
     Route: 058
     Dates: start: 202202
  3. NUTROPIN AQ [Suspect]
     Active Substance: SOMATROPIN
     Route: 058

REACTIONS (3)
  - Arthralgia [Unknown]
  - Weight increased [Unknown]
  - Product dose omission issue [Unknown]
